FAERS Safety Report 14925807 (Version 6)
Quarter: 2018Q3

REPORT INFORMATION
  Report Type: Report from Study
  Country: DE (occurrence: DE)
  Receive Date: 20180522
  Receipt Date: 20180705
  Transmission Date: 20181010
  Serious: Yes (Hospitalization, Other)
  Sender: FDA-Public Use
  Company Number: DE-GILEAD-2018-0339095

PATIENT
  Age: 64 Year
  Sex: Female
  Weight: 68 kg

DRUGS (11)
  1. GELATIN [Concomitant]
     Active Substance: GELATIN
     Dosage: UNK UNK, QD
     Dates: start: 20150625
  2. MOVICOL [Concomitant]
     Active Substance: POLYETHYLENE GLYCOL 3350\POTASSIUM CHLORIDE\SODIUM BICARBONATE\SODIUM CHLORIDE
     Dosage: UNK
     Dates: start: 20150716
  3. TRAUMEEL [Concomitant]
     Dosage: UNK
     Dates: start: 20150521, end: 20150702
  4. DAKLINZA [Suspect]
     Active Substance: DACLATASVIR
     Indication: CHRONIC HEPATITIS C
     Dosage: 60 MG, QD
     Route: 048
     Dates: start: 20150702, end: 20150924
  5. HYALURONIC ACID [Concomitant]
     Active Substance: HYALURONIC ACID
     Dosage: 30 MG, UNK
     Dates: start: 20150201
  6. ZEEL [Concomitant]
     Dosage: UNK
     Dates: start: 20150715, end: 20150715
  7. DEKRISTOL [Concomitant]
     Active Substance: CHOLECALCIFEROL
     Dosage: 2000 IU, Q1WK
  8. SOFOSBUVIR [Suspect]
     Active Substance: SOFOSBUVIR
     Indication: CHRONIC HEPATITIS C
     Dosage: 400 MG, QD
     Route: 048
     Dates: start: 20150702, end: 20150924
  9. SALMON OIL [Concomitant]
     Active Substance: FISH OIL
     Dosage: 1000 MG, UNK
  10. VOLTAREN [Concomitant]
     Active Substance: DICLOFENAC SODIUM
     Dosage: UNK UNK, PRN
  11. DULCOLAX (BISACODYL) [Concomitant]
     Active Substance: BISACODYL
     Dosage: UNK
     Dates: start: 20140701, end: 20150713

REACTIONS (3)
  - Drug dose omission [Recovered/Resolved]
  - Pyrexia [Unknown]
  - Hepatocellular carcinoma [Unknown]

NARRATIVE: CASE EVENT DATE: 20150702
